FAERS Safety Report 5179672-2 (Version None)
Quarter: 2006Q4

REPORT INFORMATION
  Report Type: 
  Country: None (occurrence: None)
  Receive Date: 20061211
  Receipt Date: 20061205
  Transmission Date: 20070319
  Serious: Yes (Death)
  Sender: FDA-Public Use
  Company Number: 163-20785-06090690

PATIENT
  Age: 62 Year
  Sex: Male

DRUGS (1)
  1. THALOMID [Suspect]
     Indication: MULTIPLE MYELOMA
     Dosage: 50 MG, QD, ORAL
     Route: 048
     Dates: start: 20060613, end: 20060701

REACTIONS (2)
  - DISEASE PROGRESSION [None]
  - NEOPLASM MALIGNANT [None]
